FAERS Safety Report 25030279 (Version 3)
Quarter: 2025Q1

REPORT INFORMATION
  Report Type: Report from Study
  Country: CO (occurrence: CO)
  Receive Date: 20250303
  Receipt Date: 20250324
  Transmission Date: 20250408
  Serious: Yes (Other)
  Sender: NOVARTIS
  Company Number: CO-002147023-NVSC2024CO236492

PATIENT
  Age: 57 Year
  Sex: Female
  Weight: 55 kg

DRUGS (11)
  1. KISQALI [Suspect]
     Active Substance: RIBOCICLIB
     Indication: Hormone receptor positive HER2 negative breast cancer
     Dosage: 600 MG, QD
     Route: 048
     Dates: start: 20240909, end: 20241213
  2. KISQALI [Suspect]
     Active Substance: RIBOCICLIB
     Indication: Breast cancer metastatic
     Dosage: 400 MG, QD
     Route: 048
     Dates: start: 202412
  3. KISQALI [Suspect]
     Active Substance: RIBOCICLIB
     Dosage: 600 MG, QD
     Route: 048
     Dates: start: 202501
  4. KISQALI [Suspect]
     Active Substance: RIBOCICLIB
     Route: 065
     Dates: start: 20250205
  5. KISQALI [Suspect]
     Active Substance: RIBOCICLIB
     Route: 065
  6. FEMARA [Suspect]
     Active Substance: LETROZOLE
     Indication: Hormone receptor positive HER2 negative breast cancer
     Dosage: 2.5 MG, QD
     Route: 048
     Dates: start: 20240909
  7. FEMARA [Suspect]
     Active Substance: LETROZOLE
     Indication: Breast cancer metastatic
     Route: 065
     Dates: end: 202501
  8. FEMARA [Suspect]
     Active Substance: LETROZOLE
     Route: 065
     Dates: start: 202502
  9. PREGABALIN [Concomitant]
     Active Substance: PREGABALIN
     Indication: Pain management
     Route: 065
  10. PREGABALIN [Concomitant]
     Active Substance: PREGABALIN
     Dosage: UNK, QD
     Route: 048
     Dates: start: 20240901
  11. LOSARTAN [Concomitant]
     Active Substance: LOSARTAN
     Indication: Hypertension
     Dosage: QD, (STARTED 3 YEARS AGO)
     Route: 048

REACTIONS (13)
  - Decreased immune responsiveness [Recovered/Resolved]
  - Joint destruction [Not Recovered/Not Resolved]
  - Decreased appetite [Not Recovered/Not Resolved]
  - Concomitant disease aggravated [Not Recovered/Not Resolved]
  - Drug ineffective [Unknown]
  - General physical health deterioration [Unknown]
  - Body height decreased [Unknown]
  - Pain in extremity [Unknown]
  - Mobility decreased [Unknown]
  - Pulmonary mass [Unknown]
  - Vomiting [Unknown]
  - Fatigue [Unknown]
  - Gait disturbance [Recovered/Resolved]

NARRATIVE: CASE EVENT DATE: 20240901
